FAERS Safety Report 16366769 (Version 6)
Quarter: 2020Q1

REPORT INFORMATION
  Report Type: Spontaneous
  Country: US (occurrence: US)
  Receive Date: 20190529
  Receipt Date: 20200114
  Transmission Date: 20200409
  Serious: Yes (Other)
  Sender: FDA-Public Use
  Company Number: US-SA-2019SA139524

PATIENT
  Age: 63 Year
  Sex: Female

DRUGS (8)
  1. LANTUS SOLOSTAR [Suspect]
     Active Substance: INSULIN GLARGINE
     Indication: TYPE 2 DIABETES MELLITUS
     Dosage: 15 U, EVERY EVENING
     Route: 065
  2. LANTUS SOLOSTAR [Suspect]
     Active Substance: INSULIN GLARGINE
     Dosage: 15 IU, HS
     Route: 065
     Dates: start: 20190417, end: 20191004
  3. LANTUS SOLOSTAR [Suspect]
     Active Substance: INSULIN GLARGINE
     Dosage: 23 IU, UNK
     Route: 065
     Dates: start: 20190606
  4. GLYBURIDE. [Concomitant]
     Active Substance: GLYBURIDE
     Dosage: 4 MG, MORNING
     Route: 065
  5. LANTUS SOLOSTAR [Suspect]
     Active Substance: INSULIN GLARGINE
     Dosage: 27 IU, UNK
     Route: 065
     Dates: start: 20190612
  6. GLYBURIDE. [Concomitant]
     Active Substance: GLYBURIDE
     Dosage: 2 MG, EVERY EVENING
     Route: 065
  7. LANTUS SOLOSTAR [Suspect]
     Active Substance: INSULIN GLARGINE
     Dosage: 19 IU, QD
     Route: 065
     Dates: start: 20190502
  8. LANTUS SOLOSTAR [Suspect]
     Active Substance: INSULIN GLARGINE
     Dosage: 29 IU, UNK
     Route: 065
     Dates: start: 20190718

REACTIONS (17)
  - Tinnitus [Unknown]
  - Unevaluable event [Unknown]
  - Incorrect dose administered by device [Unknown]
  - Hot flush [Unknown]
  - Muscle spasms [Unknown]
  - Dyspepsia [Unknown]
  - Blood glucose decreased [Unknown]
  - Device operational issue [Unknown]
  - Injection site bruising [Unknown]
  - Feeling abnormal [Unknown]
  - Loss of consciousness [Unknown]
  - Dysarthria [Unknown]
  - Blood glucose increased [Unknown]
  - Product contamination with body fluid [Unknown]
  - Hyperhidrosis [Unknown]
  - Palpitations [Unknown]
  - Dehydration [Unknown]
